FAERS Safety Report 14723084 (Version 1)
Quarter: 2018Q2

REPORT INFORMATION
  Report Type: Spontaneous
  Country: DK (occurrence: DK)
  Receive Date: 20180401
  Receipt Date: 20180401
  Transmission Date: 20180711
  Serious: No
  Sender: FDA-Public Use
  Company Number: None

PATIENT
  Age: 31 Year
  Sex: Female
  Weight: 50 kg

DRUGS (1)
  1. IBUPROFEN 200 [Suspect]
     Active Substance: IBUPROFEN

REACTIONS (1)
  - Dizziness [None]

NARRATIVE: CASE EVENT DATE: 20180401
